FAERS Safety Report 25063003 (Version 2)
Quarter: 2025Q2

REPORT INFORMATION
  Report Type: Spontaneous
  Country: US (occurrence: US)
  Receive Date: 20250311
  Receipt Date: 20250410
  Transmission Date: 20250716
  Serious: No
  Sender: PFIZER
  Company Number: US-PFIZER INC-2018479404

PATIENT
  Age: 81 Year
  Sex: Female

DRUGS (2)
  1. PREMARIN [Suspect]
     Active Substance: ESTROGENS, CONJUGATED
     Route: 067
  2. PREMARIN [Suspect]
     Active Substance: ESTROGENS, CONJUGATED

REACTIONS (4)
  - Upper respiratory tract infection [Recovered/Resolved]
  - Memory impairment [Unknown]
  - Product prescribing error [Unknown]
  - Off label use [Unknown]
